FAERS Safety Report 15369115 (Version 1)
Quarter: 2018Q3

REPORT INFORMATION
  Report Type: Spontaneous
  Country: FR (occurrence: FR)
  Receive Date: 20180911
  Receipt Date: 20180911
  Transmission Date: 20181010
  Serious: Yes (Hospitalization)
  Sender: FDA-Public Use
  Company Number: FR-TEVA-2018-FR-953474

PATIENT
  Age: 92 Year
  Sex: Female
  Weight: 60 kg

DRUGS (1)
  1. PANTOPRAZOLE [Suspect]
     Active Substance: PANTOPRAZOLE
     Dosage: 20 MILLIGRAM DAILY;
     Route: 048

REACTIONS (4)
  - Hypocalcaemia [Recovered/Resolved]
  - Hypoparathyroidism [Recovered/Resolved]
  - Seizure [Recovered/Resolved]
  - Hypomagnesaemia [Recovered/Resolved]
